FAERS Safety Report 16914617 (Version 2)
Quarter: 2019Q4

REPORT INFORMATION
  Report Type: Spontaneous
  Country: GB (occurrence: GB)
  Receive Date: 20191014
  Receipt Date: 20191021
  Transmission Date: 20200122
  Serious: Yes (Hospitalization, Other)
  Sender: FDA-Public Use
  Company Number: GB-PFIZER INC-2019437576

PATIENT
  Age: 33 Year
  Sex: Male

DRUGS (1)
  1. ALPRAZOLAM. [Suspect]
     Active Substance: ALPRAZOLAM
     Dosage: UNK
     Route: 055

REACTIONS (5)
  - Counterfeit product administered [Unknown]
  - Product counterfeit [Unknown]
  - Drug abuse [Unknown]
  - Overdose [Unknown]
  - Traumatic lung injury [Unknown]
